FAERS Safety Report 5360526-3 (Version None)
Quarter: 2007Q2

REPORT INFORMATION
  Report Type: 
  Country: None (occurrence: None)
  Receive Date: 20070618
  Receipt Date: 20070608
  Transmission Date: 20071010
  Serious: Yes (Other)
  Sender: FDA-Public Use
  Company Number: B0475454A

PATIENT
  Sex: Female

DRUGS (1)
  1. NIQUITIN CQ LOZENGE [Suspect]
     Indication: DRUG USE FOR UNKNOWN INDICATION

REACTIONS (3)
  - DRUG WITHDRAWAL SYNDROME [None]
  - NICOTINE DEPENDENCE [None]
  - WEIGHT INCREASED [None]
